FAERS Safety Report 16321311 (Version 4)
Quarter: 2019Q4

REPORT INFORMATION
  Report Type: Spontaneous
  Country: CA (occurrence: CA)
  Receive Date: 20190516
  Receipt Date: 20191003
  Transmission Date: 20200122
  Serious: Yes (Other)
  Sender: FDA-Public Use
  Company Number: CA-TEVA-2019-CA-1050310

PATIENT
  Age: 37 Year
  Sex: Female

DRUGS (20)
  1. MELOXICAM. [Suspect]
     Active Substance: MELOXICAM
     Indication: PRODUCT USED FOR UNKNOWN INDICATION
     Route: 065
  2. MOBICOX [Suspect]
     Active Substance: MELOXICAM
     Indication: PRODUCT USED FOR UNKNOWN INDICATION
     Route: 065
  3. HYDROMORPHONE HCL INJ USP [Suspect]
     Active Substance: HYDROMORPHONE HYDROCHLORIDE
     Indication: PRODUCT USED FOR UNKNOWN INDICATION
     Route: 065
  4. INDOMETHACIN. [Suspect]
     Active Substance: INDOMETHACIN
     Indication: PRODUCT USED FOR UNKNOWN INDICATION
     Route: 065
  5. LOLO [Concomitant]
     Active Substance: ETHINYL ESTRADIOL\NORETHINDRONE ACETATE
     Indication: PRODUCT USED FOR UNKNOWN INDICATION
     Route: 065
  6. DICLOFENAC [Suspect]
     Active Substance: DICLOFENAC
     Indication: PRODUCT USED FOR UNKNOWN INDICATION
     Route: 065
  7. GABAPENTIN. [Suspect]
     Active Substance: GABAPENTIN
     Dosage: 1200 MILLIGRAM DAILY;
     Route: 065
  8. INDOMETACIN [Suspect]
     Active Substance: INDOMETHACIN
     Indication: PRODUCT USED FOR UNKNOWN INDICATION
     Route: 065
  9. TEVA-INDOMETACIN [Suspect]
     Active Substance: INDOMETHACIN
     Indication: PRODUCT USED FOR UNKNOWN INDICATION
     Route: 065
  10. CELEBREX [Suspect]
     Active Substance: CELECOXIB
     Indication: ARTHRITIS
     Dosage: 200 MILLIGRAM DAILY;
     Route: 065
  11. FENTANYL. [Suspect]
     Active Substance: FENTANYL
     Indication: PRODUCT USED FOR UNKNOWN INDICATION
     Route: 065
  12. GABAPENTIN. [Suspect]
     Active Substance: GABAPENTIN
     Indication: PRODUCT USED FOR UNKNOWN INDICATION
     Dosage: 600 MILLIGRAM DAILY;
     Route: 065
  13. DICLOFENAC SODIUM. [Suspect]
     Active Substance: DICLOFENAC SODIUM
     Indication: PRODUCT USED FOR UNKNOWN INDICATION
     Route: 065
  14. FENTANYL CITRATE INJECTION [Suspect]
     Active Substance: FENTANYL CITRATE
     Indication: PRODUCT USED FOR UNKNOWN INDICATION
     Dosage: 37 MICROGRAM DAILY;
     Route: 065
  15. HYDROMORPHONE [Suspect]
     Active Substance: HYDROMORPHONE
     Indication: PRODUCT USED FOR UNKNOWN INDICATION
     Route: 065
  16. ARAVA [Concomitant]
     Active Substance: LEFLUNOMIDE
     Indication: PRODUCT USED FOR UNKNOWN INDICATION
     Dosage: 20 MILLIGRAM DAILY;
     Route: 065
  17. RIZATRIPTAN. [Concomitant]
     Active Substance: RIZATRIPTAN
     Indication: MIGRAINE
     Route: 065
  18. HYDROMORPHONE HYDROCHLORIDE. [Suspect]
     Active Substance: HYDROMORPHONE HYDROCHLORIDE
     Indication: PRODUCT USED FOR UNKNOWN INDICATION
     Route: 065
  19. PROPRANOLOL HYDROCHLORIDE. [Concomitant]
     Active Substance: PROPRANOLOL HYDROCHLORIDE
     Indication: MIGRAINE
     Dosage: 20 MILLIGRAM DAILY;
     Route: 065
  20. PROPANOLOL                         /00030001/ [Concomitant]
     Active Substance: PROPRANOLOL HYDROCHLORIDE
     Indication: MIGRAINE

REACTIONS (7)
  - Anaphylactic reaction [Unknown]
  - Drug ineffective [Unknown]
  - Nausea [Unknown]
  - Hypermobility syndrome [Unknown]
  - Ankylosing spondylitis [Unknown]
  - Condition aggravated [Unknown]
  - Vomiting [Unknown]
